FAERS Safety Report 17785845 (Version 1)
Quarter: 2020Q2

REPORT INFORMATION
  Report Type: Spontaneous
  Country: US (occurrence: US)
  Receive Date: 20200514
  Receipt Date: 20200514
  Transmission Date: 20200714
  Serious: Yes (Death, Hospitalization, Disabling, Other)
  Sender: FDA-Public Use
  Company Number: US-SA-2020SA124605

PATIENT
  Age: 73 Year
  Sex: Female

DRUGS (1)
  1. GOLD BOND ORIGINAL STRENGTH POWDER [Suspect]
     Active Substance: MENTHOL\ZINC OXIDE

REACTIONS (7)
  - Occupational exposure to product [Fatal]
  - Lung neoplasm malignant [Fatal]
  - Loss of personal independence in daily activities [Unknown]
  - Exposure to chemical pollution [Fatal]
  - Exposure via partner [Fatal]
  - Anxiety [Unknown]
  - Pain [Unknown]

NARRATIVE: CASE EVENT DATE: 1962
